FAERS Safety Report 10128680 (Version 1)
Quarter: 2014Q2

REPORT INFORMATION
  Report Type: Spontaneous
  Country: KR (occurrence: KR)
  Receive Date: 20140428
  Receipt Date: 20140428
  Transmission Date: 20141212
  Serious: Yes (Disabling)
  Sender: FDA-Public Use
  Company Number: KR-TEVA-477813ISR

PATIENT
  Age: 57 Year
  Sex: Male

DRUGS (5)
  1. DOXORUBICIN NOS [Suspect]
     Indication: THERAPEUTIC EMBOLISATION
     Dosage: 20 MILLIGRAM DAILY;
     Route: 050
  2. LIPIODOL [Suspect]
     Indication: THERAPEUTIC EMBOLISATION
     Dosage: 3 ML DAILY;
     Route: 050
  3. GELFOAM [Suspect]
     Indication: THERAPEUTIC EMBOLISATION
     Route: 050
  4. LAMIVUDINE [Concomitant]
     Indication: HEPATITIS B
     Route: 065
  5. ADEFOVIR DIPIVOXIL [Concomitant]
     Indication: HEPATITIS B
     Route: 065

REACTIONS (1)
  - Paraplegia [Recovering/Resolving]
